FAERS Safety Report 4530918-0 (Version None)
Quarter: 2004Q4

REPORT INFORMATION
  Report Type: 
  Country: None (occurrence: None)
  Receive Date: 20041215
  Receipt Date: 20041129
  Transmission Date: 20050328
  Serious: Yes (Hospitalization)
  Sender: FDA-Public Use
  Company Number: 210477

PATIENT
  Age: 45 Year
  Sex: Female

DRUGS (11)
  1. AVASTIN [Suspect]
     Indication: COLON CANCER
     Dosage: 400 MG, INTRAVENOUS
     Route: 042
     Dates: start: 20040902
  2. CPT-11 (IRINOTECAN HYDROCHLORIDE) [Concomitant]
  3. LEUCOVORIN CALCIUM [Concomitant]
  4. FLUOROURACIL [Concomitant]
  5. OGEN [Concomitant]
  6. MULTI-VITAMINS [Concomitant]
  7. REGLAN [Concomitant]
  8. PROTONIX (PANTOPRAOZLE) [Concomitant]
  9. DECADRON [Concomitant]
  10. ANZEMET [Concomitant]
  11. EMEND [Concomitant]

REACTIONS (3)
  - DEHYDRATION [None]
  - FEBRILE NEUTROPENIA [None]
  - URINARY TRACT INFECTION ENTEROCOCCAL [None]
